FAERS Safety Report 5782008-7 (Version None)
Quarter: 2008Q2

REPORT INFORMATION
  Report Type: 
  Country: None (occurrence: None)
  Receive Date: 20080623
  Receipt Date: 20080410
  Transmission Date: 20081010
  Serious: No
  Sender: FDA-Public Use
  Company Number: US-ASTRAZENECA-2008UW07414

PATIENT
  Age: 29 Year
  Sex: Male
  Weight: 86.2 kg

DRUGS (2)
  1. RHINOCORT [Suspect]
     Indication: SINUSITIS
     Dosage: 1 SPRAY IN EACH NOSTRIL DAILY
     Route: 045
     Dates: start: 20080408
  2. DECONGESTANTS [Concomitant]

REACTIONS (1)
  - BALANCE DISORDER [None]
